FAERS Safety Report 9534190 (Version 1)
Quarter: 2013Q3

REPORT INFORMATION
  Report Type: Spontaneous
  Country: GB (occurrence: GB)
  Receive Date: 20130918
  Receipt Date: 20130918
  Transmission Date: 20140515
  Serious: Yes (Life-Threatening)
  Sender: FDA-Public Use
  Company Number: GB-BAYER-2013-112187

PATIENT
  Age: 23 Year
  Sex: Female

DRUGS (4)
  1. MIRENA [Suspect]
     Indication: CONTRACEPTION
     Dosage: 20 MCG/24HR, CONT
     Route: 015
  2. FENTANYL [Concomitant]
     Route: 042
  3. ONDANSETRON [Concomitant]
     Route: 042
  4. PROPOFOL [Concomitant]
     Route: 042

REACTIONS (1)
  - Anaphylactic reaction [Recovering/Resolving]
